FAERS Safety Report 5240434-9 (Version None)
Quarter: 2007Q1

REPORT INFORMATION
  Report Type: 
  Country: None (occurrence: None)
  Receive Date: 20070219
  Receipt Date: 20070206
  Transmission Date: 20070707
  Serious: Yes (Disabling, Other)
  Sender: FDA-Public Use
  Company Number: PHEH2006US14307

PATIENT
  Age: 80 Year
  Sex: Female

DRUGS (8)
  1. EXJADE [Suspect]
     Indication: IRON OVERLOAD
     Dosage: 1500 MG, QD
     Route: 048
     Dates: start: 20060801, end: 20061106
  2. SIMVASTATIN [Concomitant]
     Dosage: 20 MG, QD
     Route: 048
  3. AMARYL [Concomitant]
     Dosage: 4 MG, QD
     Route: 048
  4. ASPIRIN [Concomitant]
     Dosage: 325 MG, QD
     Route: 048
  5. COREG [Concomitant]
     Dosage: 6.25 MG, BID
     Route: 048
  6. LASIX [Concomitant]
     Dosage: 20 MG, QD
     Route: 048
  7. LANTUS [Concomitant]
     Dosage: 15 UNITS
     Route: 058
  8. LISINOPRIL [Concomitant]
     Dosage: 10 MG, QD
     Route: 048

REACTIONS (4)
  - AUDIOGRAM ABNORMAL [None]
  - DEAFNESS NEUROSENSORY [None]
  - EAR DISCOMFORT [None]
  - EUSTACHIAN TUBE DYSFUNCTION [None]
